FAERS Safety Report 8683816 (Version 8)
Quarter: 2013Q2

REPORT INFORMATION
  Report Type: Spontaneous
  Country: US (occurrence: US)
  Receive Date: 20120726
  Receipt Date: 20130411
  Transmission Date: 20140414
  Serious: Yes (Other)
  Sender: FDA-Public Use
  Company Number: US-PFIZER INC-2012178731

PATIENT
  Age: 58 Year
  Sex: Female
  Weight: 54.4 kg

DRUGS (7)
  1. CHANTIX [Suspect]
     Indication: SMOKING CESSATION THERAPY
     Dosage: 0.5 MG, DAILY
     Dates: start: 2011
  2. CHANTIX [Suspect]
     Dosage: 1 MG, 2X/DAY
  3. CHANTIX [Suspect]
     Dosage: 1 MG, 1X/ADY (DAILY) (CONTINUING MO PACK)
  4. PRISTIQ [Suspect]
     Indication: DEPRESSION
     Dosage: 50 MG, 1X/DAY
  5. SPIRIVA [Suspect]
     Indication: DYSPNOEA
     Dosage: UNK
  6. WELLBUTRIN SR [Suspect]
     Dosage: 150 MG, 1X/DAY AT 6 AM
  7. SYMBICORT [Suspect]
     Indication: DYSPNOEA
     Dosage: UNK

REACTIONS (5)
  - Lung neoplasm malignant [Unknown]
  - Dyspnoea [Unknown]
  - Chronic obstructive pulmonary disease [Unknown]
  - Drug ineffective [Unknown]
  - Impaired work ability [Unknown]
